FAERS Safety Report 18321217 (Version 3)
Quarter: 2025Q3

REPORT INFORMATION
  Report Type: Spontaneous
  Country: EU (occurrence: EU)
  Receive Date: 20200928
  Receipt Date: 20250818
  Transmission Date: 20251020
  Serious: Yes (Other)
  Sender: TEVA
  Company Number: EU-EMA-DD-20200907-VASISTHA_P-164941

PATIENT
  Age: 53 Year
  Sex: Female

DRUGS (9)
  1. TRAMADOL [Suspect]
     Active Substance: TRAMADOL
     Indication: Chemical submission
     Route: 065
  2. OXAZEPAM [Suspect]
     Active Substance: OXAZEPAM
     Indication: Chemical submission
     Route: 065
  3. VALIUM [Suspect]
     Active Substance: DIAZEPAM
     Indication: Chemical submission
     Route: 065
  4. XANAX [Suspect]
     Active Substance: ALPRAZOLAM
     Indication: Chemical submission
     Route: 065
  5. IMOVANE [Suspect]
     Active Substance: ZOPICLONE
     Indication: Chemical submission
     Route: 065
  6. BROMAZEPAM [Suspect]
     Active Substance: BROMAZEPAM
     Indication: Chemical submission
     Dosage: 3 TABLETS IN THE EVENING
     Route: 048
  7. NORDAZEPAM [Suspect]
     Active Substance: NORDAZEPAM
     Indication: Chemical submission
     Route: 065
  8. LORAZEPAM [Suspect]
     Active Substance: LORAZEPAM
     Indication: Chemical submission
     Route: 050
  9. CYAMEMAZINE [Suspect]
     Active Substance: CYAMEMAZINE
     Indication: Chemical submission
     Route: 065

REACTIONS (16)
  - Chemical submission [Unknown]
  - Nausea [Recovered/Resolved]
  - Wrong rate [Unknown]
  - Cholinergic syndrome [Recovered/Resolved]
  - Weight decreased [Recovered/Resolved]
  - Poisoning [Recovered/Resolved]
  - Vomiting [Recovered/Resolved]
  - Suicidal ideation [Recovered/Resolved]
  - Salivary hypersecretion [Recovered/Resolved]
  - Fatigue [Recovered/Resolved]
  - Major depression [Recovered/Resolved]
  - Product use in unapproved indication [Unknown]
  - Fatigue [Not Recovered/Not Resolved]
  - Drug level increased [Unknown]
  - Malaise [Not Recovered/Not Resolved]
  - Exposure during pregnancy [Unknown]

NARRATIVE: CASE EVENT DATE: 20200101
